FAERS Safety Report 18254660 (Version 8)
Quarter: 2020Q4

REPORT INFORMATION
  Report Type: Report from Study
  Country: JP (occurrence: JP)
  Receive Date: 20200910
  Receipt Date: 20201209
  Transmission Date: 20210113
  Serious: Yes (Hospitalization, Other)
  Sender: FDA-Public Use
  Company Number: JP-BRISTOL-MYERS SQUIBB COMPANY-BMS-2020-072562

PATIENT
  Age: 52 Year
  Sex: Male
  Weight: 75 kg

DRUGS (13)
  1. BLINDED NIVOLUMAB [Suspect]
     Active Substance: NIVOLUMAB
     Indication: RENAL CELL CARCINOMA
     Dosage: 39.6 MILLILITER
     Dates: start: 20200721, end: 20200721
  2. BLINDED NIVOLUMAB [Suspect]
     Active Substance: NIVOLUMAB
     Dosage: 39.6 MILLILITER
     Dates: start: 20200831, end: 20200831
  3. PLACEBO [Suspect]
     Active Substance: UNSPECIFIED INGREDIENT
     Indication: RENAL CELL CARCINOMA
     Dosage: 39.6 MILLILITER
     Dates: start: 20200721, end: 20200721
  4. BLINDED IPILIMUMAB [Suspect]
     Active Substance: IPILIMUMAB
     Dosage: 124 MILLILITER
     Dates: start: 20200721, end: 20200721
  5. PLACEBO [Suspect]
     Active Substance: UNSPECIFIED INGREDIENT
     Dosage: 124 MILLILITER
     Dates: start: 20200831, end: 20200831
  6. FEBURIC [Concomitant]
     Active Substance: FEBUXOSTAT
     Indication: PRODUCT USED FOR UNKNOWN INDICATION
     Route: 065
     Dates: start: 20200818
  7. BLINDED IPILIMUMAB [Suspect]
     Active Substance: IPILIMUMAB
     Indication: RENAL CELL CARCINOMA
     Dosage: 39.6 MILLILITER
     Dates: start: 20200721, end: 20200721
  8. BLINDED NIVOLUMAB [Suspect]
     Active Substance: NIVOLUMAB
     Dosage: 124 MILLILITER
     Dates: start: 20200721, end: 20200721
  9. PLACEBO [Suspect]
     Active Substance: UNSPECIFIED INGREDIENT
     Dosage: 124 MILLILITER
     Dates: start: 20200721, end: 20200721
  10. BLINDED IPILIMUMAB [Suspect]
     Active Substance: IPILIMUMAB
     Dosage: 39.6 MILLILITER
     Dates: start: 20200831, end: 20200831
  11. PLACEBO [Suspect]
     Active Substance: UNSPECIFIED INGREDIENT
     Dosage: 39.6 MILLILITER
     Dates: start: 20200831, end: 20200831
  12. BLINDED IPILIMUMAB [Suspect]
     Active Substance: IPILIMUMAB
     Dosage: 124 MILLILITER
     Dates: start: 20200831, end: 20200831
  13. BLINDED NIVOLUMAB [Suspect]
     Active Substance: NIVOLUMAB
     Dosage: 124 MILLILITER
     Dates: start: 20200831, end: 20200831

REACTIONS (1)
  - Meningitis aseptic [Recovering/Resolving]

NARRATIVE: CASE EVENT DATE: 20200903
